FAERS Safety Report 10676980 (Version 1)
Quarter: 2014Q4

REPORT INFORMATION
  Report Type: Spontaneous
  Country: PE (occurrence: PE)
  Receive Date: 20141226
  Receipt Date: 20141226
  Transmission Date: 20150529
  Serious: Yes (Hospitalization)
  Sender: FDA-Public Use
  Company Number: PE-SA-2014SA175856

PATIENT
  Age: 0 Day
  Sex: Male
  Weight: 3.22 kg

DRUGS (2)
  1. METICORTEN [Suspect]
     Active Substance: PREDNISONE
     Indication: MATERNAL EXPOSURE DURING PREGNANCY
     Route: 064
     Dates: start: 201404
  2. ARAVA [Suspect]
     Active Substance: LEFLUNOMIDE
     Indication: MATERNAL EXPOSURE DURING PREGNANCY
     Route: 064

REACTIONS (3)
  - Foetal exposure during pregnancy [Unknown]
  - Pigmentation disorder [Unknown]
  - Blood bilirubin increased [Unknown]

NARRATIVE: CASE EVENT DATE: 20141019
